FAERS Safety Report 8127256-6 (Version None)
Quarter: 2012Q1

REPORT INFORMATION
  Report Type: 
  Country: None (occurrence: None)
  Receive Date: 20120210
  Receipt Date: 20120129
  Transmission Date: 20120608
  Serious: Yes (Hospitalization)
  Sender: FDA-Public Use
  Company Number: PHHY2012AT008283

PATIENT
  Age: 50 Year
  Sex: Male

DRUGS (14)
  1. NEBIVOLOL [Suspect]
     Dosage: 5 MG, UNK
     Dates: end: 20111213
  2. CLOZAPINE [Suspect]
     Dosage: 400 MG, QD
  3. LISINOPRIL [Concomitant]
     Dosage: 20 MG, QD
     Dates: end: 20111213
  4. FLUMAZENIL [Concomitant]
     Indication: SEDATION
     Route: 042
  5. CLOZAPINE [Suspect]
     Dosage: 250 MG, QD
     Dates: start: 20111209, end: 20111213
  6. UNASYN [Suspect]
     Dosage: 3 G, QD
     Dates: start: 20111209, end: 20111213
  7. LASIX [Concomitant]
     Dosage: 40 MG, UNK
     Dates: start: 20111209, end: 20111213
  8. NOVALGIN                                /SCH/ [Concomitant]
     Dosage: 1000 MG, QD
     Dates: start: 20111209, end: 20111211
  9. DIPIDOLOR [Concomitant]
     Indication: PAIN
     Dosage: 3.75 MG, UNK
     Route: 042
     Dates: start: 20111213
  10. UNASYN [Suspect]
     Dosage: 9 G, QD
     Route: 042
  11. CLONAZEPAM [Concomitant]
     Dosage: 7 MG, QD
     Dates: start: 20111209, end: 20111213
  12. NORVASC [Concomitant]
     Dosage: 5 MG, UNK
     Dates: end: 20111213
  13. PANTOLOC ^BYK GULDEN^ [Concomitant]
     Dosage: 40 MG, QD
     Dates: end: 20111213
  14. SEROQUEL [Concomitant]
     Dosage: 200 MG, QD

REACTIONS (21)
  - ILEUS [None]
  - AGITATION [None]
  - BLOOD TRIGLYCERIDES INCREASED [None]
  - UPPER LIMB FRACTURE [None]
  - SOMATIC DELUSION [None]
  - BLOOD CREATININE INCREASED [None]
  - CONSTIPATION [None]
  - PAIN [None]
  - ACUTE ABDOMEN [None]
  - SEDATION [None]
  - NEUTROPHIL COUNT INCREASED [None]
  - AGGRESSION [None]
  - ASPARTATE AMINOTRANSFERASE INCREASED [None]
  - RENAL FAILURE [None]
  - ALANINE AMINOTRANSFERASE INCREASED [None]
  - MEGACOLON [None]
  - PNEUMONIA [None]
  - WHITE BLOOD CELL COUNT INCREASED [None]
  - BLOOD CREATINE PHOSPHOKINASE INCREASED [None]
  - HYPERTENSION [None]
  - GAMMA-GLUTAMYLTRANSFERASE INCREASED [None]
